FAERS Safety Report 8467463-6 (Version None)
Quarter: 2012Q2

REPORT INFORMATION
  Report Type: 
  Country: None (occurrence: None)
  Receive Date: 20120626
  Receipt Date: 20120622
  Transmission Date: 20120825
  Serious: Yes (Life-Threatening, Hospitalization, Disabling)
  Sender: FDA-Public Use
  Company Number: DE-ROCHE-1081698

PATIENT
  Age: 80 Year
  Sex: Female

DRUGS (4)
  1. RANIBIZUMAB [Suspect]
     Route: 050
     Dates: start: 20100916
  2. RANIBIZUMAB [Suspect]
     Indication: AGE-RELATED MACULAR DEGENERATION
     Route: 050
     Dates: start: 20080424
  3. RANIBIZUMAB [Suspect]
     Route: 050
     Dates: start: 20120503
  4. RANIBIZUMAB [Suspect]
     Route: 050
     Dates: start: 20110127

REACTIONS (1)
  - CEREBROVASCULAR ACCIDENT [None]
